FAERS Safety Report 10046103 (Version 1)
Quarter: 2014Q1

REPORT INFORMATION
  Report Type: Spontaneous
  Country: US (occurrence: US)
  Receive Date: 20140331
  Receipt Date: 20140331
  Transmission Date: 20141002
  Serious: Yes (Hospitalization, Other)
  Sender: FDA-Public Use
  Company Number: US-BIOGENIDEC-2014BI028765

PATIENT
  Sex: Female
  Weight: 61 kg

DRUGS (9)
  1. AVONEX [Suspect]
     Indication: RELAPSING-REMITTING MULTIPLE SCLEROSIS
     Route: 030
     Dates: start: 19970501, end: 2013
  2. EXCEDRIN EXTRA STRENGTH [Concomitant]
     Indication: FATIGUE
  3. OXYBUTYNIN CHLORIDE [Concomitant]
     Indication: URINARY INCONTINENCE
     Route: 048
  4. VITAMIN D [Concomitant]
     Route: 048
  5. BACLOFEN [Concomitant]
     Indication: MUSCLE SPASTICITY
     Route: 048
  6. CALCIUM [Concomitant]
  7. TYLENOL [Concomitant]
  8. FLUOXETINE HCL [Concomitant]
     Indication: ADJUSTMENT DISORDER WITH DEPRESSED MOOD
     Route: 048
  9. VITAMIN B12 [Concomitant]

REACTIONS (4)
  - Subarachnoid haemorrhage [Unknown]
  - Appendicectomy [Unknown]
  - Oophorectomy [Unknown]
  - Multiple sclerosis [Unknown]
